FAERS Safety Report 11645497 (Version 1)
Quarter: 2015Q4

REPORT INFORMATION
  Report Type: Spontaneous
  Country: US (occurrence: US)
  Receive Date: 20151020
  Receipt Date: 20151020
  Transmission Date: 20160304
  Serious: No
  Sender: FDA-Public Use
  Company Number: US-WATSON-2015-17095

PATIENT
  Sex: Male

DRUGS (1)
  1. MORPHINE SULFATE (AELLC) [Suspect]
     Active Substance: MORPHINE SULFATE
     Indication: NEURALGIA
     Dosage: UNK, UNKNOWN
     Route: 065

REACTIONS (3)
  - Drug ineffective [Unknown]
  - Neuralgia [None]
  - Product substitution issue [None]
